FAERS Safety Report 5369257-7 (Version None)
Quarter: 2007Q2

REPORT INFORMATION
  Report Type: 
  Country: None (occurrence: None)
  Receive Date: 20070625
  Receipt Date: 20070618
  Transmission Date: 20071010
  Serious: Yes (Hospitalization)
  Sender: FDA-Public Use
  Company Number: FR-ELI_LILLY_AND_COMPANY-FR200706004022

PATIENT
  Age: 73 Year
  Sex: Male
  Weight: 69 kg

DRUGS (2)
  1. ZYPREXA [Suspect]
     Indication: MANIA
     Dosage: 20 MG, DAILY (1/D)
     Route: 048
     Dates: start: 20070317, end: 20070331
  2. RIVOTRIL [Concomitant]
     Route: 048

REACTIONS (2)
  - EOSINOPHILIA [None]
  - RASH MACULAR [None]
